FAERS Safety Report 8605573-0 (Version None)
Quarter: 2012Q3

REPORT INFORMATION
  Report Type: 
  Country: None (occurrence: None)
  Receive Date: 20120820
  Receipt Date: 20120813
  Transmission Date: 20120928
  Serious: Yes (Other)
  Sender: FDA-Public Use
  Company Number: DE-B.I. PHARMACEUTICALS,INC./RIDGEFIELD-2012-DE-01547DE

PATIENT
  Sex: Male
  Weight: 60 kg

DRUGS (8)
  1. ASPIRIN [Concomitant]
     Dates: start: 20060101
  2. SPIRIVA [Suspect]
     Indication: CHRONIC OBSTRUCTIVE PULMONARY DISEASE
     Dates: start: 20060101, end: 20120601
  3. SIMVASTATIN [Concomitant]
     Dosage: 60 NR
     Dates: start: 20100101
  4. FLUTICASONE PROPIONATE/SALMETEROL [Concomitant]
     Dates: start: 20070101
  5. NEBIVOLOL [Concomitant]
     Dates: start: 20060101
  6. DIOVAN HCT [Concomitant]
     Dosage: 160/12.5
     Dates: start: 20060101
  7. CANDESARTAN CILEXETIL [Concomitant]
     Indication: HYPERTENSION
  8. LEFLUNOMIDE [Concomitant]
     Dates: start: 20100101

REACTIONS (4)
  - DYSPHAGIA [None]
  - OESOPHAGEAL OBSTRUCTION [None]
  - DECREASED APPETITE [None]
  - WEIGHT DECREASED [None]
